FAERS Safety Report 12445735 (Version 3)
Quarter: 2019Q3

REPORT INFORMATION
  Report Type: Spontaneous
  Country: US (occurrence: US)
  Receive Date: 20160608
  Receipt Date: 20190724
  Transmission Date: 20191004
  Serious: Yes (Other)
  Sender: FDA-Public Use
  Company Number: US-JNJFOC-20160508261

PATIENT
  Sex: Male

DRUGS (3)
  1. RISPERIDONE. [Suspect]
     Active Substance: RISPERIDONE
     Indication: SCHIZOPHRENIA
  2. RISPERIDONE. [Suspect]
     Active Substance: RISPERIDONE
     Indication: AGGRESSION
     Route: 048
     Dates: start: 1991
  3. INVEGA [Suspect]
     Active Substance: PALIPERIDONE
     Indication: PRODUCT USED FOR UNKNOWN INDICATION
     Route: 048

REACTIONS (10)
  - Dyspnoea [Unknown]
  - Muscular weakness [Unknown]
  - Mental impairment [Unknown]
  - Weight increased [Unknown]
  - Insomnia [Unknown]
  - Gynaecomastia [Unknown]
  - Constipation [Unknown]
  - Myalgia [Unknown]
  - Galactorrhoea [Unknown]
  - Pregnancy of partner [Unknown]
